FAERS Safety Report 6211335-4 (Version None)
Quarter: 2009Q2

REPORT INFORMATION
  Report Type: 
  Country: None (occurrence: None)
  Receive Date: 20090602
  Receipt Date: 20090526
  Transmission Date: 20091009
  Serious: Yes (Other)
  Sender: FDA-Public Use
  Company Number: US-JNJCH-2009014681

PATIENT
  Sex: Female

DRUGS (1)
  1. VISINE-A [Suspect]
     Indication: OCULAR HYPERAEMIA
     Dosage: TEXT:1 DROP IN EYE ONCE
     Route: 047

REACTIONS (2)
  - APPLICATION SITE BURN [None]
  - MYDRIASIS [None]
